FAERS Safety Report 23650355 (Version 1)
Quarter: 2024Q1

REPORT INFORMATION
  Report Type: Spontaneous
  Country: US (occurrence: None)
  Receive Date: 20240320
  Receipt Date: 20240320
  Transmission Date: 20240409
  Serious: No
  Sender: FDA-Public Use
  Company Number: US-ROCHE-3411101

PATIENT
  Age: 76 Year
  Sex: Male
  Weight: 74.91 kg

DRUGS (4)
  1. VABYSMO [Suspect]
     Active Substance: FARICIMAB\FARICIMAB-SVOA
     Indication: Neovascular age-related macular degeneration
     Dosage: IN BOTH EYES, HIS FIRST DOSE WAS ON 06/JUN/2023 AND SECOND WAS ON 18/JUL/2023) AND HE IS DUE?FOR HIS
     Route: 031
     Dates: start: 20230606
  2. BETADINE [Suspect]
     Active Substance: POVIDONE-IODINE
     Indication: Product used for unknown indication
     Route: 065
  3. EYLEA [Concomitant]
     Active Substance: AFLIBERCEPT
  4. RESTASIS [Concomitant]
     Active Substance: CYCLOSPORINE

REACTIONS (4)
  - Off label use [Unknown]
  - Eye pain [Not Recovered/Not Resolved]
  - Photosensitivity reaction [Not Recovered/Not Resolved]
  - Eye irritation [Not Recovered/Not Resolved]

NARRATIVE: CASE EVENT DATE: 20230606
